FAERS Safety Report 14972646 (Version 3)
Quarter: 2019Q2

REPORT INFORMATION
  Report Type: Spontaneous
  Country: US (occurrence: US)
  Receive Date: 20180605
  Receipt Date: 20190617
  Transmission Date: 20190711
  Serious: Yes (Hospitalization, Other)
  Sender: FDA-Public Use
  Company Number: US-PFIZER INC-2018226326

PATIENT
  Age: 86 Year
  Sex: Male
  Weight: 91 kg

DRUGS (1)
  1. ADVIL LIQUI-GELS [Suspect]
     Active Substance: IBUPROFEN
     Indication: ARTHRALGIA
     Dosage: 1 DF, AS NEEDED

REACTIONS (5)
  - Burn oral cavity [Unknown]
  - Reflux gastritis [Not Recovered/Not Resolved]
  - Dysphagia [Recovered/Resolved]
  - Product use complaint [Recovered/Resolved]
  - Foaming at mouth [Unknown]

NARRATIVE: CASE EVENT DATE: 201805
